FAERS Safety Report 5006956-0 (Version None)
Quarter: 2006Q2

REPORT INFORMATION
  Report Type: 
  Country: None (occurrence: None)
  Receive Date: 20060517
  Receipt Date: 20060509
  Transmission Date: 20061013
  Serious: Yes (Death, Hospitalization)
  Sender: FDA-Public Use
  Company Number: 221923

PATIENT
  Age: 63 Year
  Sex: Male
  Weight: 85 kg

DRUGS (11)
  1. MABTHERA (RITUXIMAB) CONC FOR SOLUTION FOR INFUSION [Suspect]
     Indication: CHRONIC LYMPHOCYTIC LEUKAEMIA
     Dosage: 787 MG
     Dates: start: 20060124
  2. CYCLOPHOSPHAMIDE [Suspect]
     Indication: CHRONIC LYMPHOCYTIC LEUKAEMIA
     Dosage: 525 MG
     Dates: start: 20060125, end: 20060127
  3. FLUDARABINE [Suspect]
     Indication: CHRONIC LYMPHOCYTIC LEUKAEMIA
     Dosage: 52.5 MG
     Dates: start: 20060125, end: 20060127
  4. ASPIRIN [Concomitant]
  5. DIOVAN HCT [Concomitant]
  6. MORPHINE [Concomitant]
  7. ACETAMINOPHEN [Concomitant]
  8. PREDNISONE [Concomitant]
  9. ALLOPURINOL [Concomitant]
  10. COTRIM FORTE (SULFAMETHOXAZOLE, TRIMETHOPRIM) [Concomitant]
  11. PANTOPRAZOLE SODIUM [Concomitant]

REACTIONS (1)
  - NEUTROPENIA [None]
